FAERS Safety Report 6228695-0 (Version None)
Quarter: 2009Q2

REPORT INFORMATION
  Report Type: 
  Country: None (occurrence: None)
  Receive Date: 20090615
  Receipt Date: 20090609
  Transmission Date: 20091009
  Serious: No
  Sender: FDA-Public Use
  Company Number: US-B.I. PHARMACEUTICALS,INC./RIDGEFIELD-2009-BP-04681BP

PATIENT
  Sex: Female
  Weight: 81 kg

DRUGS (7)
  1. MICARDIS HCT [Suspect]
     Indication: HYPERTENSION
     Route: 048
     Dates: start: 20060608
  2. MOTRIN [Concomitant]
     Indication: ARTHRITIS
  3. LEXAPRO [Concomitant]
     Dosage: 20MG
     Dates: start: 20070101
  4. LYSINE [Concomitant]
  5. ECHINACEA [Concomitant]
  6. OMNIPRED [Concomitant]
  7. LORATADINE [Concomitant]
     Dosage: 10MG

REACTIONS (7)
  - DIZZINESS [None]
  - EAR DISCOMFORT [None]
  - ENAMEL ANOMALY [None]
  - PHOTOSENSITIVITY REACTION [None]
  - RHINITIS [None]
  - SKIN BURNING SENSATION [None]
  - TINNITUS [None]
